FAERS Safety Report 16698445 (Version 1)
Quarter: 2019Q3

REPORT INFORMATION
  Report Type: Spontaneous
  Country: CA (occurrence: CA)
  Receive Date: 20190813
  Receipt Date: 20190813
  Transmission Date: 20191004
  Serious: Yes (Disabling)
  Sender: FDA-Public Use
  Company Number: CA-TEVA-2019-CA-1091428

PATIENT
  Age: 34 Year
  Sex: Male
  Weight: 79.45 kg

DRUGS (5)
  1. VALACYCLOVIR [Suspect]
     Active Substance: VALACYCLOVIR HYDROCHLORIDE
     Indication: GENITAL HERPES
     Dosage: 1000 MILLIGRAM DAILY;
  2. DIAZEPAM. [Concomitant]
     Active Substance: DIAZEPAM
  3. GABAPENTIN. [Concomitant]
     Active Substance: GABAPENTIN
  4. VALACYCLOVIR [Suspect]
     Active Substance: VALACYCLOVIR HYDROCHLORIDE
     Dosage: 500 MILLIGRAM DAILY;
  5. ZOPICLONE [Concomitant]
     Active Substance: ZOPICLONE

REACTIONS (4)
  - Constipation [Recovered/Resolved]
  - Dry skin [Recovered/Resolved]
  - Drug ineffective [Recovered/Resolved]
  - Dry eye [Recovered/Resolved]
